FAERS Safety Report 14995807 (Version 1)
Quarter: 2018Q2

REPORT INFORMATION
  Report Type: Spontaneous
  Country: US (occurrence: US)
  Receive Date: 20180522
  Receipt Date: 20180522
  Transmission Date: 20180711
  Serious: Yes (Disabling, Other)
  Sender: FDA-Public Use
  Company Number: None

PATIENT
  Age: 27 Year
  Sex: Female
  Weight: 76.5 kg

DRUGS (12)
  1. ZYRTEC [Concomitant]
     Active Substance: CETIRIZINE HYDROCHLORIDE
  2. FAMOTADINE [Concomitant]
  3. PROTONIX [Concomitant]
     Active Substance: PANTOPRAZOLE SODIUM
  4. NEXPLANON [Suspect]
     Active Substance: ETONOGESTREL
     Indication: CONTRACEPTION
     Dosage: ?          QUANTITY:1 1;OTHER FREQUENCY:ONCE PER 3 YEARS;?
     Route: 058
     Dates: start: 20160224
  5. LUNESTA [Concomitant]
     Active Substance: ESZOPICLONE
  6. IMPLANON [Suspect]
     Active Substance: ETONOGESTREL
  7. VITAMIN B2 [Concomitant]
     Active Substance: RIBOFLAVIN
  8. PROPRANOLOL [Concomitant]
     Active Substance: PROPRANOLOL HYDROCHLORIDE
  9. RINITIDINE [Concomitant]
  10. IMITREX [Concomitant]
     Active Substance: SUMATRIPTAN SUCCINATE
  11. ETONEGESTEL IMPLANT 68MG [Suspect]
     Active Substance: ETONOGESTREL
  12. ZOLOFT [Concomitant]
     Active Substance: SERTRALINE HYDROCHLORIDE

REACTIONS (12)
  - Ulcer [None]
  - Malaise [None]
  - Vomiting [None]
  - Epigastric discomfort [None]
  - Impaired work ability [None]
  - Migraine [None]
  - Abdominal pain upper [None]
  - Frequent bowel movements [None]
  - Gastric pH decreased [None]
  - Gastritis [None]
  - Abdominal discomfort [None]
  - Haematochezia [None]

NARRATIVE: CASE EVENT DATE: 20161001
